FAERS Safety Report 6063331-8 (Version None)
Quarter: 2009Q1

REPORT INFORMATION
  Report Type: 
  Country: None (occurrence: None)
  Receive Date: 20090203
  Receipt Date: 20090122
  Transmission Date: 20090719
  Serious: Yes (Disabling, Other)
  Sender: FDA-Public Use
  Company Number: GB-PFIZER INC-2009151443

PATIENT

DRUGS (1)
  1. DOSTINEX [Suspect]
     Indication: PROLACTINOMA
     Dosage: 0.5 MG TWICE A WEEK
     Route: 048
     Dates: start: 20080501

REACTIONS (5)
  - DISTURBANCE IN ATTENTION [None]
  - SELF-INJURIOUS IDEATION [None]
  - SLEEP APNOEA SYNDROME [None]
  - SOMNOLENCE [None]
  - SUICIDAL IDEATION [None]
